FAERS Safety Report 9818778 (Version 1)
Quarter: 2014Q1

REPORT INFORMATION
  Report Type: Spontaneous
  Country: US (occurrence: None)
  Receive Date: 20140114
  Receipt Date: 20140114
  Transmission Date: 20141002
  Serious: No
  Sender: FDA-Public Use
  Company Number: None

PATIENT
  Age: 54 Year
  Sex: Male

DRUGS (6)
  1. PEGASYS 180MCG / 0.5ML RO - GNE [Suspect]
     Indication: HEPATITIS C
     Dates: start: 20140104
  2. MICARDIS [Concomitant]
  3. TRAMADOL [Concomitant]
  4. IBUPROFEN [Concomitant]
  5. RIBASPHERE [Concomitant]
  6. SOVALDI [Concomitant]

REACTIONS (4)
  - Chills [None]
  - Hyperhidrosis [None]
  - Pain [None]
  - Influenza like illness [None]
